FAERS Safety Report 7309662-2 (Version None)
Quarter: 2011Q1

REPORT INFORMATION
  Report Type: 
  Country: None (occurrence: None)
  Receive Date: 20110224
  Receipt Date: 20110215
  Transmission Date: 20110831
  Serious: Yes (Hospitalization)
  Sender: FDA-Public Use
  Company Number: US-BIOGENIDEC-2011BI000283

PATIENT
  Age: 50 Year
  Sex: Female
  Weight: 82 kg

DRUGS (1)
  1. TYSABRI [Suspect]
     Indication: MULTIPLE SCLEROSIS
     Route: 042
     Dates: start: 20100609

REACTIONS (5)
  - OESOPHAGEAL SPASM [None]
  - CHEST PAIN [None]
  - LOSS OF CONSCIOUSNESS [None]
  - SYNCOPE [None]
  - HYPOTENSION [None]
